FAERS Safety Report 12384816 (Version 3)
Quarter: 2016Q3

REPORT INFORMATION
  Report Type: Report from Study
  Country: KR (occurrence: KR)
  Receive Date: 20160519
  Receipt Date: 20160816
  Transmission Date: 20161109
  Serious: Yes (Hospitalization)
  Sender: FDA-Public Use
  Company Number: PHHO2016KR007058

PATIENT
  Age: 54 Year
  Sex: Male
  Weight: 51.5 kg

DRUGS (10)
  1. ENTRESTO [Suspect]
     Active Substance: SACUBITRIL\VALSARTAN
     Indication: EJECTION FRACTION DECREASED
     Dosage: 200 MG, BID
     Route: 048
     Dates: start: 20151113, end: 20160503
  2. ENTRESTO [Suspect]
     Active Substance: SACUBITRIL\VALSARTAN
     Dosage: 50 MG, BID
     Route: 048
     Dates: start: 20160720
  3. ENTRESTO [Suspect]
     Active Substance: SACUBITRIL\VALSARTAN
     Indication: CARDIAC FAILURE CHRONIC
     Dosage: 100 MG, BID
     Route: 048
     Dates: start: 20151029, end: 20151112
  4. ENTRESTO [Suspect]
     Active Substance: SACUBITRIL\VALSARTAN
     Dosage: 200 MG, BID
     Route: 048
     Dates: start: 20160506, end: 20160627
  5. DILATREND [Suspect]
     Active Substance: CARVEDILOL
     Indication: ATRIAL FIBRILLATION
     Dosage: 1.562 MG, QD
     Route: 048
     Dates: start: 20160420, end: 20160503
  6. ALDACTONE [Concomitant]
     Active Substance: SPIRONOLACTONE
     Indication: CARDIAC FAILURE CONGESTIVE
     Dosage: 12.5 MG, QD
     Route: 048
     Dates: start: 20110630
  7. CLOSONE [Concomitant]
     Indication: ATRIAL FIBRILLATION
     Dosage: 1 DF(CAP), QD
     Route: 048
     Dates: start: 20140610
  8. FURIX [Concomitant]
     Active Substance: FUROSEMIDE
     Indication: CARDIAC FAILURE CONGESTIVE
     Dosage: 20 MG, QD
     Route: 048
     Dates: start: 20160127
  9. PENNEL [Concomitant]
     Indication: HEPATIC CIRRHOSIS
     Dosage: 25 MG, BID
     Route: 048
     Dates: start: 20140204
  10. GODEX [Concomitant]
     Indication: HEPATIC CIRRHOSIS
     Dosage: 2.5 MG, BID
     Route: 048
     Dates: start: 20140204

REACTIONS (2)
  - Presyncope [Recovered/Resolved]
  - Hypotension [Recovered/Resolved]

NARRATIVE: CASE EVENT DATE: 20160503
